FAERS Safety Report 26017493 (Version 1)
Quarter: 2025Q4

REPORT INFORMATION
  Report Type: Report from Study
  Country: US (occurrence: US)
  Receive Date: 20251110
  Receipt Date: 20251110
  Transmission Date: 20260118
  Serious: Yes (Other)
  Sender: ALEXION PHARMACEUTICALS
  Company Number: 202508USA017746US

PATIENT
  Age: 56 Year
  Sex: Male

DRUGS (1)
  1. STRENSIQ [Suspect]
     Active Substance: ASFOTASE ALFA
     Indication: Hypophosphataemia
     Dosage: 2 MILLIGRAM/KILOGRAM, TIW
     Route: 065

REACTIONS (6)
  - Injection site mass [Unknown]
  - Pyrexia [Unknown]
  - Calcinosis [Unknown]
  - Pain [Unknown]
  - Autoimmune thyroiditis [Unknown]
  - Injection site pain [Unknown]
